FAERS Safety Report 7031940-5 (Version None)
Quarter: 2010Q4

REPORT INFORMATION
  Report Type: 
  Country: None (occurrence: None)
  Receive Date: 20101007
  Receipt Date: 20100930
  Transmission Date: 20110411
  Serious: Yes (Hospitalization, Other)
  Sender: FDA-Public Use
  Company Number: US-ELI_LILLY_AND_COMPANY-US201005005439

PATIENT
  Sex: Female
  Weight: 127.89 kg

DRUGS (18)
  1. BYETTA [Suspect]
     Indication: TYPE 2 DIABETES MELLITUS
     Dosage: 5 UG, 2/D
     Route: 058
     Dates: start: 20070201, end: 20070101
  2. BYETTA [Suspect]
     Dosage: 10 UG, 2/D
     Route: 058
     Dates: start: 20070101, end: 20070101
  3. BYETTA [Suspect]
     Dosage: 5 UG, 2/D
     Route: 058
     Dates: start: 20070101, end: 20070101
  4. BYETTA [Suspect]
     Dosage: 10 UG, 2/D
     Route: 058
     Dates: start: 20071101, end: 20090101
  5. BYETTA [Suspect]
     Dosage: 10 UG, 2/D
     Route: 058
     Dates: start: 20100301
  6. METFORMIN [Concomitant]
     Indication: TYPE 2 DIABETES MELLITUS
     Dosage: 800 MG, 2/D
     Route: 048
     Dates: end: 20100101
  7. ACTOPLUS MET [Concomitant]
     Dosage: 850 MG, 2/D
     Route: 048
     Dates: start: 20100101
  8. XANAX [Concomitant]
     Dosage: 1 MG, AS NEEDED
     Route: 048
  9. LEXAPRO [Concomitant]
     Dosage: 20 MG, EACH EVENING
     Route: 048
  10. NEURONTIN [Concomitant]
     Dosage: 900 MG, 3/D
  11. FOLIC ACID [Concomitant]
     Dosage: 1 MG, DAILY (1/D)
     Route: 048
  12. COUMADIN [Concomitant]
     Dosage: 7.5 MG, 3/W
     Route: 048
  13. COUMADIN [Concomitant]
     Dosage: 10 MG, 4/W
     Route: 048
  14. COZAAR [Concomitant]
     Dosage: 100 MG, DAILY (1/D)
     Route: 048
  15. ICAR [Concomitant]
     Dosage: 250 MG, 2/D
     Route: 048
  16. NITROGLYCERIN [Concomitant]
     Dosage: 0.4 MG, AS NEEDED
  17. NEXIUM [Concomitant]
     Dosage: 40 MG, AS NEEDED
  18. SIMVASTATIN [Concomitant]
     Dosage: 40 MG, EACH EVENING
     Route: 048

REACTIONS (11)
  - ABDOMINAL PAIN UPPER [None]
  - BACK PAIN [None]
  - DECREASED APPETITE [None]
  - FLUID INTAKE REDUCED [None]
  - FOOD INTOLERANCE [None]
  - LABORATORY TEST ABNORMAL [None]
  - NAUSEA [None]
  - NEPHROLITHIASIS [None]
  - RENAL DISORDER [None]
  - URETHRAL OBSTRUCTION [None]
  - WEIGHT DECREASED [None]
